FAERS Safety Report 13813720 (Version 1)
Quarter: 2017Q3

REPORT INFORMATION
  Report Type: Spontaneous
  Country: US (occurrence: US)
  Receive Date: 20170731
  Receipt Date: 20170731
  Transmission Date: 20171127
  Serious: No
  Sender: FDA-Public Use
  Company Number: US-SUN PHARMACEUTICAL INDUSTRIES LTD-2017US-136466

PATIENT
  Sex: Male

DRUGS (1)
  1. TESTOSTERONE. [Suspect]
     Active Substance: TESTOSTERONE
     Indication: PRODUCT USED FOR UNKNOWN INDICATION
     Dosage: 0.75 ML, 1/WEEK
     Route: 065
     Dates: start: 2017

REACTIONS (3)
  - Product physical issue [Unknown]
  - Drug administration error [Unknown]
  - Rash [Unknown]

NARRATIVE: CASE EVENT DATE: 2017
